FAERS Safety Report 7744755-7 (Version None)
Quarter: 2011Q3

REPORT INFORMATION
  Report Type: 
  Country: None (occurrence: None)
  Receive Date: 20110912
  Receipt Date: 20110912
  Transmission Date: 20111222
  Serious: No
  Sender: FDA-Public Use
  Company Number: None

PATIENT
  Age: 67 Year
  Sex: Female
  Weight: 47.627 kg

DRUGS (1)
  1. RECLAST [Suspect]
     Indication: OSTEOPOROSIS
     Dosage: THE ONLY ONCE-YEARLY 5 MG
     Route: 041

REACTIONS (7)
  - PAIN IN EXTREMITY [None]
  - JOINT STIFFNESS [None]
  - MYALGIA [None]
  - MUSCULOSKELETAL PAIN [None]
  - BACK PAIN [None]
  - DIZZINESS [None]
  - INNER EAR DISORDER [None]
